FAERS Safety Report 7042399-6 (Version None)
Quarter: 2010Q4

REPORT INFORMATION
  Report Type: 
  Country: None (occurrence: None)
  Receive Date: 20101013
  Receipt Date: 20090918
  Transmission Date: 20110411
  Serious: No
  Sender: FDA-Public Use
  Company Number: US-ASTRAZENECA-2009SE06832

PATIENT
  Age: 21736 Day
  Sex: Female
  Weight: 86.2 kg

DRUGS (8)
  1. SYMBICORT [Suspect]
     Indication: ASTHMA
     Dosage: 160
     Route: 055
  2. SYMBICORT [Suspect]
     Dosage: 80 MCG/4.5 MCG
     Route: 055
  3. SYMBICORT [Suspect]
     Dosage: 320 MCG
     Route: 055
     Dates: start: 20070901
  4. PRILOSEC OTC [Concomitant]
     Route: 048
  5. ASPIRIN [Concomitant]
     Route: 048
  6. VIT E [Concomitant]
     Route: 048
  7. CABERGOLINE [Concomitant]
  8. NASONEX [Concomitant]

REACTIONS (2)
  - DRUG INEFFECTIVE [None]
  - DYSPNOEA [None]
